FAERS Safety Report 7098379-8 (Version None)
Quarter: 2010Q4

REPORT INFORMATION
  Report Type: 
  Country: None (occurrence: None)
  Receive Date: 20101112
  Receipt Date: 20101105
  Transmission Date: 20110411
  Serious: No
  Sender: FDA-Public Use
  Company Number: US-PFIZER INC-2010143651

PATIENT
  Sex: Male

DRUGS (1)
  1. GEODON [Suspect]
     Indication: ASPERGER'S DISORDER
     Dosage: 40 MG IN THE MORNING, 100 MG AT NIGHT
     Route: 048

REACTIONS (1)
  - SOMNOLENCE [None]
